FAERS Safety Report 12141849 (Version 7)
Quarter: 2016Q2

REPORT INFORMATION
  Report Type: Report from Study
  Country: US (occurrence: US)
  Receive Date: 20160303
  Receipt Date: 20160523
  Transmission Date: 20160815
  Serious: Yes (Hospitalization)
  Sender: FDA-Public Use
  Company Number: US-B.I. PHARMACEUTICALS,INC./RIDGEFIELD-2015-BI-63327BI

PATIENT
  Age: 47 Year
  Sex: Male
  Weight: 132.5 kg

DRUGS (2)
  1. NORVASC [Concomitant]
     Active Substance: AMLODIPINE BESYLATE
     Indication: HYPERTENSION
     Dosage: 10 MG
     Route: 048
     Dates: start: 20151001, end: 20151110
  2. BIBF 1120 [Suspect]
     Active Substance: NINTEDANIB
     Indication: COLORECTAL CANCER
     Dosage: 400 MG
     Route: 048
     Dates: start: 20150820, end: 20151110

REACTIONS (6)
  - Metastases to liver [Not Recovered/Not Resolved]
  - Blood bilirubin increased [Not Recovered/Not Resolved]
  - Alanine aminotransferase increased [Not Recovered/Not Resolved]
  - Liver function test increased [Recovered/Resolved with Sequelae]
  - Aspartate aminotransferase increased [Not Recovered/Not Resolved]
  - Metastases to biliary tract [Recovered/Resolved with Sequelae]

NARRATIVE: CASE EVENT DATE: 20151022
